FAERS Safety Report 11771888 (Version 1)
Quarter: 2015Q4

REPORT INFORMATION
  Report Type: Spontaneous
  Country: None (occurrence: None)
  Receive Date: 20151123
  Receipt Date: 20151123
  Transmission Date: 20160304
  Serious: No
  Sender: FDA-Public Use
  Company Number: None

PATIENT

DRUGS (1)
  1. AUGMENTIN [Suspect]
     Active Substance: AMOXICILLIN\CLAVULANATE POTASSIUM
     Indication: LYMPHADENOPATHY
     Route: 048

REACTIONS (3)
  - Feeling abnormal [None]
  - Thinking abnormal [None]
  - Confusional state [None]

NARRATIVE: CASE EVENT DATE: 20151120
